FAERS Safety Report 16109172 (Version 1)
Quarter: 2019Q1

REPORT INFORMATION
  Report Type: Spontaneous
  Country: US (occurrence: US)
  Receive Date: 20190323
  Receipt Date: 20190323
  Transmission Date: 20190418
  Serious: No
  Sender: FDA-Public Use
  Company Number: US-THERAPEUTICSMD-2019TMD00216

PATIENT
  Sex: Female
  Weight: 58.96 kg

DRUGS (3)
  1. IMVEXXY [Suspect]
     Active Substance: ESTRADIOL
     Indication: VULVOVAGINAL DRYNESS
     Dosage: 10 ?G, 1X/DAY AT BEDTIME
     Route: 067
     Dates: start: 2018, end: 2018
  2. IMVEXXY [Suspect]
     Active Substance: ESTRADIOL
     Dosage: 10 ?G, 2X/WEEK AT BEDTIME
     Route: 067
     Dates: start: 2018, end: 20190219
  3. LOSARTAN. [Concomitant]
     Active Substance: LOSARTAN
     Dosage: UNK, 1X/DAY

REACTIONS (6)
  - Breast pain [Recovering/Resolving]
  - Headache [Recovering/Resolving]
  - Amnesia [Not Recovered/Not Resolved]
  - Breast discomfort [Recovering/Resolving]
  - Off label use [Recovered/Resolved]
  - Breast mass [Recovering/Resolving]

NARRATIVE: CASE EVENT DATE: 2018
